FAERS Safety Report 10193945 (Version 1)
Quarter: 2014Q2

REPORT INFORMATION
  Report Type: Spontaneous
  Country: US (occurrence: US)
  Receive Date: 20140524
  Receipt Date: 20140524
  Transmission Date: 20141212
  Serious: No
  Sender: FDA-Public Use
  Company Number: US-SANOFI-AVENTIS-2013SA073021

PATIENT
  Age: 70 Year
  Sex: Female

DRUGS (4)
  1. LANTUS SOLOSTAR [Suspect]
     Indication: TYPE 2 DIABETES MELLITUS
     Dosage: PRODUCT START DATE - 2 YEAR AGO DOSE:14 UNIT(S)
     Route: 051
  2. SOLOSTAR [Concomitant]
     Dosage: PRODUCT START DATE - 2 YEAR AGO DOSE:20 UNIT(S)
  3. LANTUS [Suspect]
     Route: 051
  4. HUMALOG [Suspect]
     Route: 065

REACTIONS (3)
  - Muscle spasms [Recovered/Resolved]
  - Muscle tightness [Recovered/Resolved]
  - Blood glucose increased [Unknown]
